FAERS Safety Report 5022092-1 (Version None)
Quarter: 2006Q2

REPORT INFORMATION
  Report Type: 
  Country: None (occurrence: None)
  Receive Date: 20060428
  Receipt Date: 20060224
  Transmission Date: 20061013
  Serious: No
  Sender: FDA-Public Use
  Company Number: COT_0491_2006

PATIENT
  Age: 69 Year
  Sex: Female
  Weight: 81.6475 kg

DRUGS (5)
  1. VENTAVIS [Suspect]
     Indication: PULMONARY HYPERTENSION
     Dosage: 5 MCG 6TO9X/DAY IH
     Route: 055
     Dates: start: 20060207
  2. WARFARIN SODIUM [Concomitant]
  3. BENICAR [Concomitant]
  4. FOLIC ACID [Concomitant]
  5. ZOCOR [Concomitant]

REACTIONS (3)
  - COUGH [None]
  - DIZZINESS [None]
  - ORAL PAIN [None]
